FAERS Safety Report 9446035 (Version 1)
Quarter: 2013Q3

REPORT INFORMATION
  Report Type: Spontaneous
  Country: IT (occurrence: IT)
  Receive Date: 20130807
  Receipt Date: 20130807
  Transmission Date: 20140515
  Serious: Yes (Other)
  Sender: FDA-Public Use
  Company Number: IT-ASTRAZENECA-2013SE60204

PATIENT
  Age: 23710 Day
  Sex: Male

DRUGS (3)
  1. CANDESARTAN [Suspect]
     Route: 048
     Dates: start: 20120517, end: 20130516
  2. BISOPROLOL [Suspect]
     Route: 048
     Dates: start: 20120517, end: 20130516
  3. ASA [Concomitant]
     Route: 065

REACTIONS (1)
  - Syncope [Recovering/Resolving]
